FAERS Safety Report 4781998-9 (Version None)
Quarter: 2005Q3

REPORT INFORMATION
  Report Type: 
  Country: None (occurrence: None)
  Receive Date: 20050928
  Receipt Date: 20050718
  Transmission Date: 20060218
  Serious: Yes (Disabling)
  Sender: FDA-Public Use
  Company Number: US-MERCK-0507USA03073

PATIENT
  Age: 66 Year
  Sex: Male
  Weight: 80 kg

DRUGS (9)
  1. VIOXX [Suspect]
     Indication: ARTHRALGIA
     Route: 048
     Dates: start: 20000626, end: 20041001
  2. ASPIRIN [Concomitant]
     Route: 065
  3. TYLENOL (CAPLET) [Concomitant]
     Route: 065
  4. ACTOS [Concomitant]
     Route: 065
  5. PLAVIX [Concomitant]
     Route: 065
  6. THIAMINE [Concomitant]
     Route: 065
  7. CYANOCOBALAMIN [Concomitant]
     Route: 065
  8. HYDROCODIN [Concomitant]
     Route: 065
  9. VITAMINS (UNSPECIFIED) [Concomitant]
     Route: 065

REACTIONS (1)
  - MYOCARDIAL INFARCTION [None]
